FAERS Safety Report 9259649 (Version 2)
Quarter: 2013Q2

REPORT INFORMATION
  Report Type: Spontaneous
  Country: AU (occurrence: AU)
  Receive Date: 20130429
  Receipt Date: 20130527
  Transmission Date: 20140414
  Serious: Yes (Other)
  Sender: FDA-Public Use
  Company Number: AU-BIOGENIDEC-2013BI035531

PATIENT
  Age: 59 Year
  Sex: Female

DRUGS (7)
  1. TYSABRI [Suspect]
     Indication: MULTIPLE SCLEROSIS
     Route: 042
     Dates: start: 20090406, end: 20110131
  2. AVONEX [Concomitant]
     Indication: MULTIPLE SCLEROSIS
  3. GILENYA [Concomitant]
     Dates: start: 20110818, end: 20130409
  4. AVAPRO [Concomitant]
  5. AMLODIPINE [Concomitant]
  6. MADOPAR [Concomitant]
  7. HORMONE REPLACEMENT THERAPY [Concomitant]

REACTIONS (1)
  - Diffuse large B-cell lymphoma [Not Recovered/Not Resolved]
